FAERS Safety Report 13533155 (Version 1)
Quarter: 2017Q2

REPORT INFORMATION
  Report Type: Spontaneous
  Country: FR (occurrence: FR)
  Receive Date: 20170510
  Receipt Date: 20170510
  Transmission Date: 20170830
  Serious: Yes (Hospitalization)
  Sender: FDA-Public Use
  Company Number: FR-ASTRAZENECA-2017SE48685

PATIENT
  Age: 26605 Day
  Sex: Female

DRUGS (6)
  1. INDAPAMIDE. [Concomitant]
     Active Substance: INDAPAMIDE
     Indication: HYPERTENSION
  2. AMAREL [Concomitant]
     Active Substance: GLIMEPIRIDE
  3. BYDUREON [Suspect]
     Active Substance: EXENATIDE
     Indication: TYPE 2 DIABETES MELLITUS
     Route: 058
     Dates: start: 20161018, end: 20161103
  4. COVERAM [Concomitant]
     Active Substance: AMLODIPINE\PERINDOPRIL
     Indication: HYPERTENSION
  5. STAGID [Concomitant]
     Active Substance: METFORMIN PAMOATE
     Indication: TYPE 2 DIABETES MELLITUS
  6. DETENSIEL [Concomitant]
     Active Substance: BISOPROLOL FUMARATE
     Indication: HYPERTENSION

REACTIONS (2)
  - Pancreatitis [Recovered/Resolved]
  - Diarrhoea [Recovered/Resolved]

NARRATIVE: CASE EVENT DATE: 20161103
